FAERS Safety Report 10149759 (Version 1)
Quarter: 2014Q2

REPORT INFORMATION
  Report Type: Spontaneous
  Country: FR (occurrence: FR)
  Receive Date: 20140502
  Receipt Date: 20140502
  Transmission Date: 20141212
  Serious: Yes (Hospitalization)
  Sender: FDA-Public Use
  Company Number: FR-ELI_LILLY_AND_COMPANY-FR201404007198

PATIENT
  Sex: Male

DRUGS (3)
  1. GEMZAR [Suspect]
     Indication: ADENOCARCINOMA PANCREAS
     Dosage: 1000 MG/M2, CYCLICAL
     Route: 042
     Dates: start: 20131105, end: 201402
  2. PERINDOPRIL [Concomitant]
     Dosage: 4 MG, QD
  3. CORDARONE [Concomitant]
     Dosage: 200 MG, QD

REACTIONS (11)
  - Generalised oedema [Recovering/Resolving]
  - Hypoalbuminaemia [Recovering/Resolving]
  - Weight increased [Unknown]
  - Blood creatinine increased [Unknown]
  - Pericardial effusion [Not Recovered/Not Resolved]
  - Ejection fraction decreased [Unknown]
  - Pleural effusion [Not Recovered/Not Resolved]
  - Protein total decreased [Unknown]
  - Ventricular hypokinesia [Recovered/Resolved]
  - Lung disorder [Unknown]
  - Effusion [Unknown]
